FAERS Safety Report 8340434-6 (Version None)
Quarter: 2012Q2

REPORT INFORMATION
  Report Type: 
  Country: None (occurrence: None)
  Receive Date: 20120507
  Receipt Date: 20120507
  Transmission Date: 20120825
  Serious: Yes (Other)
  Sender: FDA-Public Use
  Company Number: None

PATIENT
  Age: 63 Year
  Sex: Female
  Weight: 70.306 kg

DRUGS (1)
  1. MIRTAZAPINE [Suspect]
     Indication: POST-TRAUMATIC STRESS DISORDER
     Dosage: |DOSAGETEXT: 15 MG||STRENGTH: 15 MG||FREQ: EACH NIGHT||ROUTE: ORAL|
     Route: 048
     Dates: start: 20120429, end: 20120501

REACTIONS (1)
  - HALLUCINATION, VISUAL [None]
